FAERS Safety Report 20110609 (Version 4)
Quarter: 2022Q1

REPORT INFORMATION
  Report Type: Report from Study
  Country: FR (occurrence: FR)
  Receive Date: 20211124
  Receipt Date: 20220218
  Transmission Date: 20220423
  Serious: Yes (Hospitalization)
  Sender: FDA-Public Use
  Company Number: FR-SERVIER-S21013050

PATIENT

DRUGS (8)
  1. PEGASPARGASE [Suspect]
     Active Substance: PEGASPARGASE
     Indication: Acute lymphocytic leukaemia
     Dosage: 3900 IU
     Route: 042
     Dates: start: 20211102
  2. TN UNSPECIFIED [Concomitant]
     Indication: Acute lymphocytic leukaemia
     Dosage: 2 MG, D15, D23,D43, D50
     Route: 042
     Dates: start: 20211102
  3. TN UNSPECIFIED [Concomitant]
     Indication: Acute lymphocytic leukaemia
     Dosage: 1560 MG, D1, D29
     Route: 042
     Dates: start: 20211019
  4. TN UNSPECIFIED [Concomitant]
     Indication: Acute lymphocytic leukaemia
     Dosage: 115 MG, D3 TO D6, D10 TO D13, D31 TO D34, D38 TO D41
     Route: 042
     Dates: start: 20211021
  5. TN UNSPECIFIED [Concomitant]
     Dosage: 30 MG, D3 TO D31
     Route: 037
     Dates: start: 20211021
  6. TN UNSPECIFIED [Concomitant]
     Indication: Acute lymphocytic leukaemia
     Dosage: 15 MG, D3 TO D31
     Route: 037
     Dates: start: 20211021
  7. TN UNSPECIFIED [Concomitant]
     Indication: Acute lymphocytic leukaemia
     Dosage: 15 MG, D3 TO D31
     Route: 037
     Dates: start: 20211021
  8. TN UNSPECIFIED [Concomitant]
     Indication: Acute lymphocytic leukaemia
     Dosage: 100 MG ON D1 TO D14, D29 TO D42
     Route: 048
     Dates: start: 20211019, end: 20211209

REACTIONS (2)
  - Arthralgia [Recovered/Resolved]
  - Hypersensitivity [Recovered/Resolved]

NARRATIVE: CASE EVENT DATE: 20211102
